FAERS Safety Report 17197253 (Version 1)
Quarter: 2019Q4

REPORT INFORMATION
  Report Type: Other
  Country: DE (occurrence: DE)
  Receive Date: 20191224
  Receipt Date: 20191224
  Transmission Date: 20200122
  Serious: Yes (Other)
  Sender: FDA-Public Use
  Company Number: DE-ALSI-201900536

PATIENT
  Age: 59 Year
  Sex: Female

DRUGS (7)
  1. PROPOFOL. [Suspect]
     Active Substance: PROPOFOL
  2. SUCCINYLCHOLINE [Suspect]
     Active Substance: SUCCINYLCHOLINE
  3. FENTANYL. [Suspect]
     Active Substance: FENTANYL
  4. OXYGEN. [Suspect]
     Active Substance: OXYGEN
     Indication: PRODUCT USED FOR UNKNOWN INDICATION
     Route: 055
  5. REMIFENTANIL [Suspect]
     Active Substance: REMIFENTANIL
  6. VECURONIUM BROMIDE. [Suspect]
     Active Substance: VECURONIUM BROMIDE
  7. CEFTRIAXONE. [Suspect]
     Active Substance: CEFTRIAXONE

REACTIONS (2)
  - Rhabdomyolysis [Unknown]
  - Hypotension [Recovered/Resolved]
